FAERS Safety Report 26126357 (Version 1)
Quarter: 2025Q4

REPORT INFORMATION
  Report Type: Spontaneous
  Country: EU (occurrence: EU)
  Receive Date: 20251205
  Receipt Date: 20251205
  Transmission Date: 20260118
  Serious: Yes (Hospitalization)
  Sender: BAXTER
  Company Number: None

PATIENT
  Age: 19 Year
  Sex: Female
  Weight: 51 kg

DRUGS (22)
  1. CYCLOPHOSPHAMIDE [Suspect]
     Active Substance: CYCLOPHOSPHAMIDE
     Indication: Ewing^s sarcoma
     Dosage: 1200MG/M^2
     Route: 065
     Dates: start: 20250501
  2. DOXORUBICIN [Suspect]
     Active Substance: DOXORUBICIN
     Dosage: INFUSION, 1 MG/MG (MILLIGRAM PER MILLIGRAM)
     Route: 065
  3. IFOSFAMIDE [Suspect]
     Active Substance: IFOSFAMIDE
     Dosage: INFUSION, 1 MG/MG (MILLIGRAM PER MILLIGRAM)
     Route: 065
  4. METOCLOPRAMIDE [Concomitant]
     Active Substance: METOCLOPRAMIDE
     Dosage: 10 MG (SUPPOSITORY)
     Route: 054
  5. METOCLOPRAMIDE [Concomitant]
     Active Substance: METOCLOPRAMIDE
     Dosage: TABLET, 10 MG
     Route: 048
  6. METOCLOPRAMIDE [Concomitant]
     Active Substance: METOCLOPRAMIDE
     Dosage: TABLET, 10 MG (MILLIGRAM)
     Route: 048
  7. NYSTATIN [Concomitant]
     Active Substance: NYSTATIN
     Dosage: SUSPENSION, 100,000 UNITS/ML (UNITS PER MILLILITER)
     Route: 048
  8. OLANZAPINE [Concomitant]
     Active Substance: OLANZAPINE
     Dosage: TABLET, 5 MG (MILLIGRAM)
     Route: 048
  9. ONDANSETRON [Concomitant]
     Active Substance: ONDANSETRON
     Dosage: TABLET, 8 MG (MILLIGRAM)
     Route: 048
  10. BISACODYL [Concomitant]
     Active Substance: BISACODYL
     Dosage: GASTRO-RESISTANT TABLET, 5 MG (MILLIGRAM)
     Route: 048
  11. DEXAMETHASONE [Concomitant]
     Active Substance: DEXAMETHASONE
     Dosage: MOUTHWASH, 0.1 MG/ML (MILLIGRAM PER MILLILITER)
  12. ESOMEPRAZOLE [Concomitant]
     Active Substance: ESOMEPRAZOLE
     Dosage: SACHET (GRANULES), 10 MG (MILLIGRAM)
     Route: 048
  13. FENTANYL [Concomitant]
     Active Substance: FENTANYL
     Dosage: TABLET, 100 ?G (MICROGRAM) (BUCCAL TABLET 100 ?G)
  14. FENTANYL [Concomitant]
     Active Substance: FENTANYL
     Dosage: PATCH
     Route: 062
  15. POLYETHYLENE GLYCOLS [Concomitant]
     Active Substance: POLYETHYLENE GLYCOLS
     Dosage: POWDER FOR ORAL SOLUTION
     Route: 048
  16. MAGNESIUM HYDROXIDE [Concomitant]
     Active Substance: MAGNESIUM HYDROXIDE
     Dosage: CHEWABLE TABLET, 724 MG (MILLIGRAM)
     Route: 048
  17. NADROPARIN [Concomitant]
     Active Substance: NADROPARIN
     Dosage: INJECTION SOLUTION, 9500 IU/ML  (INTERNATIONAL UNITS PER MILLILITER)
     Route: 065
  18. ACETAMINOPHEN [Concomitant]
     Active Substance: ACETAMINOPHEN
     Dosage: TABLET, 500 MG (MILLIGRAM)
     Route: 048
  19. SUCRALFATE [Concomitant]
     Active Substance: SUCRALFATE
     Dosage: TABLET, 1 G (GRAM)
     Route: 048
  20. VASELINE PURE [Concomitant]
     Active Substance: PETROLATUM
     Dosage: OINTMENT, 500/500 MG/G
     Route: 003
  21. VINCRISTINE [Concomitant]
     Active Substance: VINCRISTINE
     Dosage: INJECTION/INFUSION, 1 MG/MG
     Route: 065
  22. ETOPOSIDE [Concomitant]
     Active Substance: ETOPOSIDE
     Dosage: NFUSION, 1 MG/MG  (MILLIGRAM PER MILLIGRAM)
     Route: 065

REACTIONS (2)
  - Pyrexia [Not Recovered/Not Resolved]
  - Infection [Not Recovered/Not Resolved]
